FAERS Safety Report 9501088 (Version 1)
Quarter: 2013Q1

REPORT INFORMATION
  Report Type: Spontaneous
  Country: US (occurrence: None)
  Receive Date: 20130107
  Receipt Date: 20130107
  Transmission Date: 20140127
  Serious: No
  Sender: FDA-Public Use
  Company Number: PHEH2012US018086

PATIENT
  Age: 52 Year
  Sex: Female

DRUGS (5)
  1. GILENYA (FTY)CAPSULE, 0.5 MG [Suspect]
     Route: 048
  2. SOMA (CARISOPRODOL) [Concomitant]
  3. GABAPENTIN (GABAPENTIN) [Concomitant]
  4. MORPHINE SULFATE (MORPHINE SULFATE) INJECTION [Concomitant]
  5. BACLOFEN (BACLOFEN) [Concomitant]

REACTIONS (1)
  - Restlessness [None]
